FAERS Safety Report 7913300-5 (Version None)
Quarter: 2011Q4

REPORT INFORMATION
  Report Type: 
  Country: None (occurrence: None)
  Receive Date: 20111114
  Receipt Date: 20111103
  Transmission Date: 20120403
  Serious: Yes (Other)
  Sender: FDA-Public Use
  Company Number: US-ASTRAZENECA-2009UW13355

PATIENT
  Sex: Female

DRUGS (6)
  1. TOPROL-XL [Suspect]
     Route: 048
  2. CRESTOR [Concomitant]
     Route: 048
  3. METOPROLOL TARTRATE [Suspect]
     Dosage: GENERIC, 50 MG TWO TIMES A DAY
     Route: 048
  4. SYNTHROID [Concomitant]
  5. PLENDIL [Concomitant]
     Route: 048
  6. TOPROL-XL [Suspect]
     Dosage: GENERIC, 50 MG TWO TIMES A DAY
     Route: 048

REACTIONS (9)
  - FATIGUE [None]
  - DRUG DOSE OMISSION [None]
  - NEOPLASM MALIGNANT [None]
  - BREAST CANCER [None]
  - DRUG INTOLERANCE [None]
  - FEELING ABNORMAL [None]
  - WRONG DRUG ADMINISTERED [None]
  - ANKLE FRACTURE [None]
  - MALAISE [None]
